FAERS Safety Report 19962119 (Version 1)
Quarter: 2021Q4

REPORT INFORMATION
  Report Type: Report from Study
  Country: US (occurrence: US)
  Receive Date: 20211018
  Receipt Date: 20211018
  Transmission Date: 20220303
  Serious: Yes (Death, Hospitalization)
  Sender: FDA-Public Use
  Company Number: US-INSMED, INC.-2021-09311-US

PATIENT
  Sex: Male

DRUGS (1)
  1. ARIKAYCE [Suspect]
     Active Substance: AMIKACIN
     Indication: Mycobacterium avium complex infection
     Dosage: 590 MILLIGRAM, QD
     Route: 055
     Dates: start: 20210818, end: 2021

REACTIONS (5)
  - Death [Fatal]
  - Chronic obstructive pulmonary disease [Unknown]
  - Hospice care [Unknown]
  - Panic attack [Unknown]
  - Anxiety [Unknown]

NARRATIVE: CASE EVENT DATE: 20210101
